FAERS Safety Report 5420032-4 (Version None)
Quarter: 2007Q3

REPORT INFORMATION
  Report Type: 
  Country: None (occurrence: None)
  Receive Date: 20070820
  Receipt Date: 20070808
  Transmission Date: 20080115
  Serious: Yes (Other)
  Sender: FDA-Public Use
  Company Number: US-PFIZER INC-2007066026

PATIENT
  Sex: Female
  Weight: 84.09 kg

DRUGS (1)
  1. ALDACTONE [Suspect]
     Indication: HYPERTENSION
     Route: 048

REACTIONS (1)
  - TYPE 2 DIABETES MELLITUS [None]
